FAERS Safety Report 9073046 (Version 1)
Quarter: 2013Q1

REPORT INFORMATION
  Report Type: Report from Study
  Country: US (occurrence: US)
  Receive Date: 20130129
  Receipt Date: 20130129
  Transmission Date: 20140127
  Serious: No
  Sender: FDA-Public Use
  Company Number: US-ABBOTT-12P-163-0930774-00

PATIENT
  Age: 90 Year
  Sex: Female

DRUGS (17)
  1. HUMIRA 40 MG/0.8 ML PEN [Suspect]
     Indication: GASTROENTERITIS
     Dates: start: 20120404
  2. HUMIRA 40 MG/0.8 ML PEN [Suspect]
     Indication: COLITIS
  3. FOSAMAX [Concomitant]
     Indication: OSTEOPOROSIS
     Dosage: 70MG WEEKLY
  4. NORVASC [Concomitant]
     Indication: HYPERTENSION
     Dosage: 5MG DAILY
     Route: 048
  5. AZATHIOPRINE [Concomitant]
     Indication: RHEUMATOID ARTHRITIS
     Dosage: 50MG DAILY
  6. ASACOL [Concomitant]
     Indication: PRODUCT USED FOR UNKNOWN INDICATION
     Dosage: 750MG, 3 CAPS, 3 TIMES DAILY
     Route: 048
  7. COSOPT [Concomitant]
     Indication: GLAUCOMA
     Dosage: 1 TWICE DAILY
  8. DORZOLAMIDE [Concomitant]
     Indication: GLAUCOMA
     Dosage: 1 TWICE DAILY
  9. LORTAB [Concomitant]
     Indication: PAIN
  10. PRILOSEC [Concomitant]
     Indication: PRODUCT USED FOR UNKNOWN INDICATION
     Dosage: 30MG DAILY
     Route: 048
  11. LATANOPROST [Concomitant]
     Indication: EYE IRRITATION
     Dosage: 1GTT DAILY
  12. METFORMIN [Concomitant]
     Indication: DIABETES MELLITUS
     Dosage: 500MG, 2 TABS, TWICE DAILY
     Route: 048
  13. METOPROLOL ER [Concomitant]
     Indication: PRODUCT USED FOR UNKNOWN INDICATION
     Dosage: 25MG, 1-1/2 TABS AT BEDTIME
  14. PRAVASTATIN [Concomitant]
     Indication: BLOOD CHOLESTEROL INCREASED
     Dosage: 20MG AT BEDTIME
     Route: 048
  15. ZOLOFT [Concomitant]
     Indication: PRODUCT USED FOR UNKNOWN INDICATION
     Dosage: 100MG, 1 TWICE DAILY
  16. CALCIUM [Concomitant]
     Indication: MINERAL SUPPLEMENTATION
     Dosage: 500MG DAILY
     Route: 048
  17. MULTIVITAMIN [Concomitant]
     Indication: VITAMIN SUPPLEMENTATION
     Dosage: DAILY
     Route: 048

REACTIONS (1)
  - Injection site pain [Recovered/Resolved]
